FAERS Safety Report 7017560-7 (Version None)
Quarter: 2010Q3

REPORT INFORMATION
  Report Type: 
  Country: None (occurrence: None)
  Receive Date: 20100928
  Receipt Date: 20091130
  Transmission Date: 20110219
  Serious: No
  Sender: FDA-Public Use
  Company Number: US-MYLANLABS-2009S1020719

PATIENT
  Age: 79 Year
  Sex: Female

DRUGS (4)
  1. FLUOXETINE HYDROCHLORIDE TABLETS [Suspect]
     Indication: DEPRESSION
     Route: 048
     Dates: start: 20091125
  2. SIMVASTATIN [Concomitant]
  3. ATENOLOL [Concomitant]
  4. XANAX [Concomitant]

REACTIONS (1)
  - NAUSEA [None]
